FAERS Safety Report 11202599 (Version 1)
Quarter: 2015Q2

REPORT INFORMATION
  Report Type: Spontaneous
  Country: KR (occurrence: KR)
  Receive Date: 20150619
  Receipt Date: 20150619
  Transmission Date: 20150821
  Serious: Yes (Hospitalization)
  Sender: FDA-Public Use
  Company Number: KR-NOVOPROD-452654

PATIENT
  Age: 16 Year
  Sex: Male
  Weight: 64 kg

DRUGS (1)
  1. NORDITROPIN [Suspect]
     Active Substance: SOMATROPIN
     Indication: GROWTH RETARDATION
     Dosage: 8 IU, QD (0.125 UNITS/KG/DAY)
     Route: 058
     Dates: start: 2014

REACTIONS (1)
  - Juvenile idiopathic arthritis [Recovered/Resolved]
